FAERS Safety Report 8770128 (Version 2)
Quarter: 2012Q4

REPORT INFORMATION
  Report Type: 
  Country: US (occurrence: US)
  Receive Date: 20120906
  Receipt Date: 20120915
  Transmission Date: 20130627
  Serious: Yes (Other)
  Sender: FDA-Public Use
  Company Number: US-BAYER-2012-090771

PATIENT
  Age: 75 Year
  Sex: Female

DRUGS (1)
  1. MAGNEVIST [Suspect]
     Indication: NUCLEAR MAGNETIC RESONANCE IMAGING ABDOMINAL
     Dosage: UNK
     Dates: start: 20120828, end: 20120828

REACTIONS (4)
  - Pain [Unknown]
  - Musculoskeletal pain [None]
  - Myalgia [Recovered/Resolved]
  - Mobility decreased [Unknown]
